FAERS Safety Report 18850457 (Version 1)
Quarter: 2021Q1

REPORT INFORMATION
  Report Type: Spontaneous
  Country: FR (occurrence: FR)
  Receive Date: 20210205
  Receipt Date: 20210205
  Transmission Date: 20210420
  Serious: Yes (Hospitalization)
  Sender: FDA-Public Use
  Company Number: FR-TEVA-2021-FR-1876117

PATIENT
  Age: 87 Year
  Sex: Male
  Weight: 57 kg

DRUGS (9)
  1. TECENTRIQ [Suspect]
     Active Substance: ATEZOLIZUMAB
     Indication: LUNG ADENOCARCINOMA
     Dosage: 1200 MG
     Route: 042
     Dates: start: 20201110, end: 20201110
  2. RAMIPRIL. [Suspect]
     Active Substance: RAMIPRIL
     Route: 065
  3. CARBOPLATINE ACCORD [Suspect]
     Active Substance: CARBOPLATIN
     Indication: LUNG ADENOCARCINOMA
     Dosage: 330 MG
     Route: 042
     Dates: start: 20201110, end: 20210106
  4. FUROSEMIDE. [Concomitant]
     Active Substance: FUROSEMIDE
  5. ALLOPURINOL. [Concomitant]
     Active Substance: ALLOPURINOL
  6. CHLORHYDRATE DE LERCANIDIPINE [Concomitant]
     Active Substance: LERCANIDIPINE HYDROCHLORIDE
  7. BISOPROLOL (FUMARATE ACIDE DE) [Concomitant]
     Active Substance: BISOPROLOL FUMARATE
  8. INNOHEP [Concomitant]
     Active Substance: TINZAPARIN SODIUM
  9. ALIMTA [Suspect]
     Active Substance: PEMETREXED DISODIUM
     Indication: LUNG ADENOCARCINOMA
     Dosage: 665 MG
     Route: 042
     Dates: start: 20201211, end: 20210106

REACTIONS (1)
  - Pericarditis [Not Recovered/Not Resolved]

NARRATIVE: CASE EVENT DATE: 20210111
